FAERS Safety Report 20917094 (Version 1)
Quarter: 2022Q2

REPORT INFORMATION
  Report Type: Spontaneous
  Country: CN (occurrence: CN)
  Receive Date: 20220606
  Receipt Date: 20220606
  Transmission Date: 20220721
  Serious: Yes (Hospitalization)
  Sender: FDA-Public Use
  Company Number: CN-SA-SAC20220531001469

PATIENT
  Age: 88 Year
  Sex: Male
  Weight: 65 kg

DRUGS (4)
  1. CLOPIDOGREL BISULFATE [Suspect]
     Active Substance: CLOPIDOGREL BISULFATE
     Indication: Platelet aggregation inhibition
     Dosage: 75 MG, QD
     Dates: start: 20220419, end: 20220521
  2. HEPARIN SODIUM [Suspect]
     Active Substance: HEPARIN SODIUM
     Indication: Thrombosis prophylaxis
     Dosage: 0.2 ML, QD
     Route: 058
  3. ASPIRIN [Suspect]
     Active Substance: ASPIRIN
     Indication: Platelet aggregation increased
     Dosage: 100 MG, QD
     Dates: start: 20220419, end: 20220521
  4. CEFOPERAZONE SODIUM\SULBACTAM SODIUM [Concomitant]
     Active Substance: CEFOPERAZONE SODIUM\SULBACTAM SODIUM
     Indication: Pneumonia
     Dosage: 3 G, BID
     Route: 041
     Dates: start: 20220428, end: 20220517

REACTIONS (1)
  - Prothrombin time abnormal [Recovering/Resolving]

NARRATIVE: CASE EVENT DATE: 20220517
